FAERS Safety Report 4886503-4 (Version None)
Quarter: 2005Q4

REPORT INFORMATION
  Report Type: 
  Country: None (occurrence: None)
  Receive Date: 20051220
  Receipt Date: 20050908
  Transmission Date: 20060501
  Serious: Yes (Other)
  Sender: FDA-Public Use
  Company Number: HQWYE398112SEP05

PATIENT
  Age: 42 Year
  Sex: Female
  Weight: 59.02 kg

DRUGS (2)
  1. EFFEXOR XR [Suspect]
     Dosage: 37.5 MG
  2. ELAVIL [Concomitant]

REACTIONS (1)
  - SEROTONIN SYNDROME [None]
